FAERS Safety Report 6539962-5 (Version None)
Quarter: 2010Q1

REPORT INFORMATION
  Report Type: 
  Country: None (occurrence: None)
  Receive Date: 20100115
  Receipt Date: 20100105
  Transmission Date: 20100710
  Serious: Yes (Hospitalization)
  Sender: FDA-Public Use
  Company Number: PHHY2010NL00493

PATIENT
  Sex: Male

DRUGS (9)
  1. ZOMETA [Suspect]
     Dosage: 4MG/5 ML (100 ML 0.9% NACL)
     Route: 042
     Dates: start: 20081219
  2. ZOMETA [Suspect]
     Dosage: 4MG/5ML (100 ML 0.9% NACL)
     Route: 042
     Dates: start: 20090129
  3. ZOMETA [Suspect]
     Dosage: 4MG/5ML (100 ML 0.9% NACL)
     Route: 042
     Dates: start: 20090313
  4. ZOMETA [Suspect]
     Dosage: 4MG/5ML (100 ML 0.9% NACL)
     Route: 042
     Dates: start: 20090423
  5. ZOMETA [Suspect]
     Dosage: 4MG/5ML (100 ML 0.9% NACL)
     Route: 042
     Dates: start: 20090604
  6. ZOMETA [Suspect]
     Dosage: 4MG/5ML (100 ML 0.9% NACL)
     Route: 042
     Dates: start: 20090716
  7. ZOMETA [Suspect]
     Dosage: 4MG/5ML (100 ML 0.9% NACL)
     Route: 042
     Dates: start: 20090827
  8. ZOMETA [Suspect]
     Dosage: 4MG/5ML (100 ML 0.9% NACL)
     Route: 042
     Dates: start: 20091008
  9. ZOMETA [Suspect]
     Dosage: 4MG/5ML (100 ML 0.9% NACL)
     Route: 042
     Dates: start: 20091230

REACTIONS (1)
  - PLEURAL EFFUSION [None]
